FAERS Safety Report 9433379 (Version 3)
Quarter: 2014Q2

REPORT INFORMATION
  Report Type: Report from Study
  Country: US (occurrence: US)
  Receive Date: 20130731
  Receipt Date: 20140506
  Transmission Date: 20141212
  Serious: Yes (Other)
  Sender: FDA-Public Use
  Company Number: US-CELGENEUS-163-21880-13073025

PATIENT
  Age: 59 Year
  Sex: Female
  Weight: 81.73 kg

DRUGS (33)
  1. REVLIMID [Suspect]
     Indication: PLASMA CELL MYELOMA
     Dosage: 25 MILLIGRAM
     Route: 048
     Dates: start: 20101129, end: 20110510
  2. REVLIMID [Suspect]
     Dosage: 25 MILLIGRAM
     Route: 048
     Dates: start: 20110516, end: 20130713
  3. DEXAMETHASONE [Suspect]
     Indication: PLASMA CELL MYELOMA
     Route: 048
     Dates: start: 20101129, end: 20110505
  4. DEXAMETHASONE [Suspect]
     Route: 048
     Dates: start: 20110516, end: 20130715
  5. DEXAMETHASONE [Suspect]
     Dosage: 20 MILLIGRAM
     Route: 048
     Dates: start: 20101129, end: 20110111
  6. DEXAMETHASONE [Suspect]
     Dosage: 20 MILLIGRAM
     Route: 048
     Dates: start: 20110114, end: 20120222
  7. DEXAMETHASONE [Suspect]
     Dosage: 20 MILLIGRAM
     Route: 048
     Dates: start: 20110509, end: 20110517
  8. VELCADE [Concomitant]
     Indication: PRODUCT USED FOR UNKNOWN INDICATION
     Route: 041
     Dates: start: 20101129
  9. VELCADE [Concomitant]
     Dosage: 2.30 - 2.32MG
     Route: 041
     Dates: start: 20101220
  10. VELCADE [Concomitant]
     Route: 041
     Dates: start: 20110425, end: 20110505
  11. ASPIRIN [Concomitant]
     Indication: PRODUCT USED FOR UNKNOWN INDICATION
     Dosage: 325 MILLIGRAM
     Route: 048
  12. PRAVASTATIN [Concomitant]
     Indication: PRODUCT USED FOR UNKNOWN INDICATION
     Route: 065
  13. PAMIDRONATE [Concomitant]
     Indication: PRODUCT USED FOR UNKNOWN INDICATION
     Dosage: 4000.8 MILLILITER
     Route: 041
     Dates: start: 20101129, end: 20101129
  14. PAMIDRONATE [Concomitant]
     Dosage: 7999.2 MILLILITER
     Route: 041
     Dates: start: 20101228, end: 20101228
  15. PAMIDRONATE [Concomitant]
     Dosage: 7999.2 MILLILITER
     Route: 041
     Dates: start: 20110210, end: 20110210
  16. PAMIDRONATE [Concomitant]
     Dosage: 7999.2 MILLILITER
     Route: 041
     Dates: start: 20110222, end: 20110222
  17. PAMIDRONATE [Concomitant]
     Dosage: 7999.2 MILLILITER
     Route: 041
     Dates: start: 20110322, end: 20110322
  18. PAMIDRONATE [Concomitant]
     Dosage: 7999.2 MILLILITER
     Route: 041
     Dates: start: 20110425, end: 20110425
  19. PROZAC [Concomitant]
     Indication: DEPRESSION
     Dosage: 20 MILLIGRAM
     Route: 048
     Dates: start: 20110124, end: 20110203
  20. ZOVIRAX [Concomitant]
     Indication: PRODUCT USED FOR UNKNOWN INDICATION
     Dosage: 800 MILLIGRAM
     Route: 048
     Dates: start: 20101129, end: 20101229
  21. ZOVIRAX [Concomitant]
     Dosage: 800 MILLIGRAM
     Route: 048
     Dates: start: 20110103, end: 20110202
  22. NEURONTIN [Concomitant]
     Indication: NEUROPATHY PERIPHERAL
     Dosage: 300 MILLIGRAM
     Route: 048
     Dates: start: 20110307, end: 20110328
  23. NEURONTIN [Concomitant]
     Dosage: 300 MILLIGRAM
     Route: 048
     Dates: start: 20110328, end: 20130916
  24. VICODIN [Concomitant]
     Indication: PAIN
     Dosage: 5 - 500MG
     Route: 048
     Dates: start: 20101208, end: 20101217
  25. PREVACID [Concomitant]
     Indication: GASTROOESOPHAGEAL REFLUX DISEASE
     Dosage: 30 MILLIGRAM
     Route: 048
     Dates: start: 20110214
  26. ATIVAN [Concomitant]
     Indication: ANXIETY
     Dosage: 4 MILLIGRAM
     Route: 048
     Dates: start: 20101208, end: 20101217
  27. PRILOSEC [Concomitant]
     Indication: CONSTIPATION
     Dosage: 40 MILLIGRAM
     Route: 048
     Dates: start: 20110124, end: 20110303
  28. NACL [Concomitant]
     Indication: PRODUCT USED FOR UNKNOWN INDICATION
     Route: 041
     Dates: start: 20101129, end: 20101129
  29. NACL [Concomitant]
     Route: 041
     Dates: start: 20101228, end: 20101228
  30. NACL [Concomitant]
     Route: 041
     Dates: start: 20110210, end: 20110210
  31. NACL [Concomitant]
     Route: 041
     Dates: start: 20110222, end: 20110222
  32. NACL [Concomitant]
     Route: 041
     Dates: start: 20110322, end: 20110322
  33. NACL [Concomitant]
     Route: 041
     Dates: start: 20110425, end: 20110425

REACTIONS (1)
  - Leiomyosarcoma [Not Recovered/Not Resolved]
